FAERS Safety Report 14265527 (Version 6)
Quarter: 2021Q4

REPORT INFORMATION
  Report Type: Report from Study
  Country: FR (occurrence: FR)
  Receive Date: 20171208
  Receipt Date: 20211028
  Transmission Date: 20220303
  Serious: Yes (Hospitalization, Other)
  Sender: FDA-Public Use
  Company Number: FR-SHIRE-FR201730985

PATIENT

DRUGS (15)
  1. PEGASPARGASE [Suspect]
     Active Substance: PEGASPARGASE
     Indication: Acute lymphocytic leukaemia
     Dosage: UNK
     Route: 065
  2. PEGASPARGASE [Suspect]
     Active Substance: PEGASPARGASE
     Dosage: 900 IU, QD
     Route: 042
     Dates: start: 20170719
  3. PEGASPARGASE [Suspect]
     Active Substance: PEGASPARGASE
     Dosage: 1750 IU, QD
     Route: 042
     Dates: start: 20171109, end: 20171109
  4. METHOTREXATE [Suspect]
     Active Substance: METHOTREXATE
     Indication: Acute lymphocytic leukaemia
     Dosage: 12 MG, QD
     Route: 037
     Dates: start: 20170608
  5. METHOTREXATE [Suspect]
     Active Substance: METHOTREXATE
     Dosage: 12 MG, QD
     Route: 037
     Dates: start: 20171109, end: 20171109
  6. METHOTREXATE [Suspect]
     Active Substance: METHOTREXATE
     Dosage: 17.5 MG, QD
     Route: 048
     Dates: start: 20170803
  7. MERCAPTOPURINE [Suspect]
     Active Substance: MERCAPTOPURINE
     Indication: Acute lymphocytic leukaemia
     Dosage: 35 MG, QD
     Route: 048
     Dates: start: 20170727
  8. VINCRISTINE [Suspect]
     Active Substance: VINCRISTINE
     Indication: Acute lymphocytic leukaemia
     Dosage: 1.1 MG, QD
     Route: 042
     Dates: start: 20171106, end: 20171213
  9. VINCRISTINE [Suspect]
     Active Substance: VINCRISTINE
     Dosage: 1 MG, QD
     Route: 042
     Dates: start: 20170615
  10. DOXORUBICIN HYDROCHLORIDE [Suspect]
     Active Substance: DOXORUBICIN HYDROCHLORIDE
     Indication: Acute lymphocytic leukaemia
     Dosage: 17.4 MG, QD
     Route: 042
     Dates: start: 20171106, end: 20171213
  11. CYTARABINE [Suspect]
     Active Substance: CYTARABINE
     Indication: Acute lymphocytic leukaemia
     Dosage: 50 MG, QD
     Route: 042
     Dates: start: 20171229, end: 20180118
  12. CYCLOPHOSPHAMIDE [Suspect]
     Active Substance: CYCLOPHOSPHAMIDE
     Indication: Acute lymphocytic leukaemia
     Dosage: 650 MG, QD
     Route: 042
     Dates: start: 20171227, end: 20171227
  13. DEXAMETHASONE [Suspect]
     Active Substance: DEXAMETHASONE
     Indication: Acute lymphocytic leukaemia
     Dosage: 4 MG, D1 TO D5, D29 TO D33, D57 TO D61
     Route: 048
     Dates: start: 20170615, end: 20170925
  14. DEXAMETHASONE [Suspect]
     Active Substance: DEXAMETHASONE
     Dosage: 7 MG, D1 TO D15
     Route: 048
     Dates: start: 20171106, end: 20171120
  15. THIOGUANINE [Suspect]
     Active Substance: THIOGUANINE
     Indication: Acute lymphocytic leukaemia
     Dosage: 40 MG, 1X/DAY:QD
     Route: 048
     Dates: start: 20171227, end: 20180109

REACTIONS (7)
  - Product use in unapproved indication [Recovered/Resolved]
  - Necrosis [Recovered/Resolved]
  - Febrile bone marrow aplasia [Recovered/Resolved]
  - Perineal necrosis [Recovered/Resolved]
  - Off label use [Recovered/Resolved]
  - Perineal infection [Recovered/Resolved]
  - Medication error [Recovered/Resolved]

NARRATIVE: CASE EVENT DATE: 20171106
